FAERS Safety Report 16317602 (Version 1)
Quarter: 2019Q2

REPORT INFORMATION
  Report Type: Spontaneous
  Country: DE (occurrence: DE)
  Receive Date: 20190516
  Receipt Date: 20190516
  Transmission Date: 20190711
  Serious: Yes (Hospitalization)
  Sender: FDA-Public Use
  Company Number: DE-TEVA-2019-DE-1049781

PATIENT
  Age: 68 Year
  Sex: Male

DRUGS (4)
  1. PIPERACILLIN/TAZOBACTUM [Concomitant]
     Active Substance: PIPERACILLIN SODIUM\TAZOBACTAM SODIUM
     Indication: EVIDENCE BASED TREATMENT
     Dosage: THREE TIMES A DAY
     Route: 065
  2. TACROLIMUS. [Suspect]
     Active Substance: TACROLIMUS
     Indication: IMMUNOSUPPRESSANT DRUG THERAPY
     Route: 065
  3. CLARITHROMYCIN. [Concomitant]
     Active Substance: CLARITHROMYCIN
     Indication: EVIDENCE BASED TREATMENT
     Route: 042
  4. CEFTRIAXONE. [Concomitant]
     Active Substance: CEFTRIAXONE
     Indication: EVIDENCE BASED TREATMENT
     Route: 042

REACTIONS (19)
  - Swelling face [Unknown]
  - Skin necrosis [Unknown]
  - Melaena [Unknown]
  - Red blood cell schistocytes present [Unknown]
  - Oedema [Unknown]
  - Haemorrhage [Unknown]
  - Pleural effusion [Unknown]
  - Ascites [Unknown]
  - Cardiac failure [Unknown]
  - Encephalopathy [Recovering/Resolving]
  - Necrotising oesophagitis [Unknown]
  - Staphylococcal sepsis [Recovering/Resolving]
  - Renal failure [Unknown]
  - Gastric ulcer [Unknown]
  - Haematemesis [Unknown]
  - Septic shock [Unknown]
  - Respiratory disorder [Unknown]
  - Anuria [Unknown]
  - Toxicity to various agents [Unknown]
